FAERS Safety Report 10540534 (Version 1)
Quarter: 2014Q4

REPORT INFORMATION
  Report Type: Spontaneous
  Country: US (occurrence: None)
  Receive Date: 20141023
  Receipt Date: 20141023
  Transmission Date: 20150529
  Serious: Yes (Other)
  Sender: FDA-Public Use
  Company Number: None

PATIENT
  Sex: Female

DRUGS (15)
  1. FLUCONAZOLE TABLETS [Concomitant]
     Active Substance: FLUCONAZOLE
  2. FINACEA [Concomitant]
     Active Substance: AZELAIC ACID
  3. VITAMIN D CAP [Concomitant]
  4. LEVOTHYROXINE TABLETS [Concomitant]
     Active Substance: LEVOTHYROXINE
  5. ATORVASTATIN TAB [Concomitant]
  6. NAPROXEN TABLETS [Concomitant]
     Active Substance: NAPROXEN
  7. CEFUROXIME TABLETS [Concomitant]
  8. AZELASTIN NASAL SPRAY [Concomitant]
  9. CLOTRIMAZOLE TROCHE [Concomitant]
     Active Substance: CLOTRIMAZOLE
  10. FLUTICASONE NASAL SPRAY [Concomitant]
     Active Substance: FLUTICASONE\FLUTICASONE PROPIONATE
  11. ORACEA CAPSULES [Concomitant]
  12. COPAXONE KIT [Concomitant]
  13. COPAXONE [Suspect]
     Active Substance: GLATIRAMER ACETATE
     Indication: MULTIPLE SCLEROSIS
     Dosage: 20MG, DAILY, SUBCUTANEOUSLY?
     Route: 058
     Dates: start: 20130704
  14. Q-DAYL LIQUID [Concomitant]
  15. NYSTATIN ORAL SUSPENSION [Concomitant]

REACTIONS (2)
  - Paraesthesia oral [None]
  - Hypoaesthesia oral [None]
